FAERS Safety Report 9648771 (Version 5)
Quarter: 2014Q3

REPORT INFORMATION
  Report Type: Report from Study
  Country: JP (occurrence: JP)
  Receive Date: 20131028
  Receipt Date: 20140814
  Transmission Date: 20150326
  Serious: Yes (Hospitalization)
  Sender: FDA-Public Use
  Company Number: PHHY2013JP121181

PATIENT
  Age: 34 Year
  Sex: Male
  Weight: 70 kg

DRUGS (2)
  1. GILENYA [Suspect]
     Active Substance: FINGOLIMOD HYDROCHLORIDE
     Indication: RELAPSING-REMITTING MULTIPLE SCLEROSIS
     Dosage: 0.5 MG, QD
     Route: 048
     Dates: start: 20120515
  2. ANTIHYPERTENSIVES [Suspect]
     Active Substance: UNSPECIFIED INGREDIENT

REACTIONS (5)
  - Blood pressure decreased [Unknown]
  - Cerebral haemorrhage [Recovering/Resolving]
  - Muscular weakness [Unknown]
  - Dysarthria [Unknown]
  - Brain oedema [Unknown]

NARRATIVE: CASE EVENT DATE: 20120531
